APPROVED DRUG PRODUCT: DESMOPRESSIN ACETATE
Active Ingredient: DESMOPRESSIN ACETATE
Strength: 0.004MG/ML
Dosage Form/Route: INJECTABLE;INJECTION
Application: A215961 | Product #001 | TE Code: AP
Applicant: DR REDDYS LABORATORIES LTD
Approved: Aug 19, 2022 | RLD: No | RS: No | Type: RX